FAERS Safety Report 11414018 (Version 3)
Quarter: 2016Q3

REPORT INFORMATION
  Report Type: Report from Study
  Country: CA (occurrence: CA)
  Receive Date: 20150824
  Receipt Date: 20160727
  Transmission Date: 20161109
  Serious: Yes (Hospitalization, Other)
  Sender: FDA-Public Use
  Company Number: CA-GILEAD-2015-0167679

PATIENT
  Age: 59 Year
  Sex: Female

DRUGS (10)
  1. SOFOSBUVIR [Suspect]
     Active Substance: SOFOSBUVIR
     Indication: HEPATITIS C
     Dosage: 400 MG, UNK
     Route: 065
     Dates: start: 20141119, end: 20150211
  2. NEURONTIN [Concomitant]
     Active Substance: GABAPENTIN
  3. FUROSEMIDE. [Concomitant]
     Active Substance: FUROSEMIDE
  4. DEXILANT [Concomitant]
     Active Substance: DEXLANSOPRAZOLE
  5. EURO-K [Concomitant]
  6. CALCIUM AND VIT D [Concomitant]
     Active Substance: CALCIUM\VITAMIN D
  7. NOVO-GESIC [Concomitant]
  8. POTASSIUM CHLORIDE. [Concomitant]
     Active Substance: POTASSIUM CHLORIDE
     Dosage: UNK
  9. PEGASYS [Suspect]
     Active Substance: PEGINTERFERON ALFA-2A
     Indication: HEPATITIS C
     Dosage: UNK
     Route: 065
     Dates: start: 20141119, end: 20150211
  10. DOCUSATE [Concomitant]
     Active Substance: DOCUSATE

REACTIONS (8)
  - Peripheral nerve lesion [Recovering/Resolving]
  - Joint swelling [Recovering/Resolving]
  - Anaemia [Recovering/Resolving]
  - Sciatic nerve injury [Recovering/Resolving]
  - Hypoaesthesia [Recovering/Resolving]
  - Peripheral swelling [Recovering/Resolving]
  - Arthralgia [Recovering/Resolving]
  - Drug ineffective [Recovering/Resolving]

NARRATIVE: CASE EVENT DATE: 20150211
